FAERS Safety Report 9595831 (Version 1)
Quarter: 2013Q4

REPORT INFORMATION
  Report Type: Spontaneous
  Country: ES (occurrence: ES)
  Receive Date: 20131004
  Receipt Date: 20131004
  Transmission Date: 20140711
  Serious: Yes (Other)
  Sender: FDA-Public Use
  Company Number: PHHY2013ES110226

PATIENT
  Age: 49 Year
  Sex: Male

DRUGS (1)
  1. OSLIF BREEZHALER [Suspect]
     Dosage: 150 UG, UNK
     Dates: start: 20130813, end: 20130815

REACTIONS (4)
  - Vomiting [Recovered/Resolved]
  - Malaise [Recovered/Resolved]
  - Tachycardia [Recovered/Resolved]
  - Headache [Recovered/Resolved]
